FAERS Safety Report 5181270-1 (Version None)
Quarter: 2006Q4

REPORT INFORMATION
  Report Type: 
  Country: None (occurrence: None)
  Receive Date: 20061220
  Receipt Date: 20051123
  Transmission Date: 20070319
  Serious: No
  Sender: FDA-Public Use
  Company Number: US-GLAXOSMITHKLINE-A0583352A

PATIENT
  Age: 45 Year
  Sex: Male

DRUGS (2)
  1. COMMIT [Suspect]
  2. NICODERM CQ [Concomitant]

REACTIONS (2)
  - ERUCTATION [None]
  - STOMACH DISCOMFORT [None]
